FAERS Safety Report 20214956 (Version 16)
Quarter: 2022Q2

REPORT INFORMATION
  Report Type: Report from Study
  Country: IE (occurrence: IE)
  Receive Date: 20211222
  Receipt Date: 20220412
  Transmission Date: 20220721
  Serious: Yes (Hospitalization)
  Sender: FDA-Public Use
  Company Number: IE-ABBVIE-21K-229-4207089-00

PATIENT
  Age: 80 Year
  Sex: Female

DRUGS (11)
  1. CARBIDOPA\LEVODOPA [Suspect]
     Active Substance: CARBIDOPA\LEVODOPA
     Indication: Parkinson^s disease
     Dosage: 1 CASSETTE CONTINUOUS
     Route: 050
     Dates: start: 20150505
  2. CARBIDOPA\LEVODOPA [Suspect]
     Active Substance: CARBIDOPA\LEVODOPA
     Dosage: 1 CASSETTE CONTINUOUS
     Route: 050
     Dates: start: 20220309, end: 2022
  3. CARBIDOPA\LEVODOPA [Suspect]
     Active Substance: CARBIDOPA\LEVODOPA
     Dosage: CONTINUOUS DOSE 2.5ML/HR; EXTRA DOSE 1.7ML
     Route: 050
     Dates: start: 2022, end: 202204
  4. CARBIDOPA\LEVODOPA [Suspect]
     Active Substance: CARBIDOPA\LEVODOPA
     Dosage: CONTINUOUS DOSE 2.6ML/HR
     Route: 050
     Dates: start: 202204
  5. MIRTAZAPINE [Concomitant]
     Active Substance: MIRTAZAPINE
     Indication: Product used for unknown indication
  6. LOSEC [Concomitant]
     Active Substance: OMEPRAZOLE
     Indication: Product used for unknown indication
  7. RIVOTRIL [Concomitant]
     Active Substance: CLONAZEPAM
     Indication: Product used for unknown indication
     Dosage: 0.75 MG
     Route: 050
  8. SINEMET [Concomitant]
     Active Substance: CARBIDOPA\LEVODOPA
     Indication: Product used for unknown indication
  9. PARALIEF [Concomitant]
     Indication: Product used for unknown indication
     Route: 050
  10. CHOLECALCIFEROL [Concomitant]
     Active Substance: CHOLECALCIFEROL
     Indication: Product used for unknown indication
     Route: 050
  11. PREGABALIN [Concomitant]
     Active Substance: PREGABALIN
     Indication: Product used for unknown indication
     Route: 050

REACTIONS (28)
  - Hip fracture [Not Recovered/Not Resolved]
  - Femoral neck fracture [Not Recovered/Not Resolved]
  - Fall [Not Recovered/Not Resolved]
  - Off label use [Recovered/Resolved]
  - Mobility decreased [Recovered/Resolved]
  - Mobility decreased [Recovering/Resolving]
  - Incontinence [Not Recovered/Not Resolved]
  - Device difficult to use [Recovered/Resolved]
  - Urinary tract infection [Recovered/Resolved]
  - Kidney infection [Not Recovered/Not Resolved]
  - Musculoskeletal disorder [Recovering/Resolving]
  - Lethargy [Recovered/Resolved]
  - Infection [Recovered/Resolved]
  - Tremor [Not Recovered/Not Resolved]
  - Device occlusion [Recovered/Resolved]
  - Confusional state [Not Recovered/Not Resolved]
  - Constipation [Not Recovered/Not Resolved]
  - Bradykinesia [Recovering/Resolving]
  - Hallucination [Recovered/Resolved]
  - On and off phenomenon [Not Recovered/Not Resolved]
  - Gait disturbance [Not Recovered/Not Resolved]
  - Muscle spasticity [Not Recovered/Not Resolved]
  - Constipation [Not Recovered/Not Resolved]
  - Therapeutic product effect decreased [Not Recovered/Not Resolved]
  - Head injury [Not Recovered/Not Resolved]
  - Hallucination [Not Recovered/Not Resolved]
  - Freezing phenomenon [Not Recovered/Not Resolved]
  - Musculoskeletal stiffness [Not Recovered/Not Resolved]

NARRATIVE: CASE EVENT DATE: 20211201
